FAERS Safety Report 21990889 (Version 1)
Quarter: 2023Q1

REPORT INFORMATION
  Report Type: Spontaneous
  Country: US (occurrence: None)
  Receive Date: 20230213
  Receipt Date: 20230213
  Transmission Date: 20230418
  Serious: Yes (Disabling)
  Sender: FDA-Public Use
  Company Number: None

PATIENT
  Age: 71 Year
  Sex: Female
  Weight: 59.4 kg

DRUGS (8)
  1. RECLAST [Suspect]
     Active Substance: ZOLEDRONIC ACID
     Indication: Osteoporosis
     Route: 042
  2. ESTRADIOL [Concomitant]
     Active Substance: ESTRADIOL
  3. BUPROPION [Concomitant]
     Active Substance: BUPROPION
  4. ATORVASTATIN [Concomitant]
     Active Substance: ATORVASTATIN
  5. XANAX [Concomitant]
     Active Substance: ALPRAZOLAM
  6. TRAMADOL [Concomitant]
     Active Substance: TRAMADOL
  7. CORTISONE [Concomitant]
     Active Substance: CORTISONE
  8. ACETAMINOPHEN [Concomitant]
     Active Substance: ACETAMINOPHEN

REACTIONS (13)
  - Infusion related reaction [None]
  - Paraesthesia [None]
  - Fatigue [None]
  - Dyspnoea [None]
  - Chills [None]
  - Body temperature increased [None]
  - Dizziness [None]
  - Migraine [None]
  - Photophobia [None]
  - Eye irritation [None]
  - Musculoskeletal stiffness [None]
  - Arthralgia [None]
  - Neck pain [None]

NARRATIVE: CASE EVENT DATE: 20230118
